FAERS Safety Report 5316549-3 (Version None)
Quarter: 2007Q2

REPORT INFORMATION
  Report Type: 
  Country: None (occurrence: None)
  Receive Date: 20070504
  Receipt Date: 20070426
  Transmission Date: 20071010
  Serious: Yes (Hospitalization)
  Sender: FDA-Public Use
  Company Number: NSADSS2003005114

PATIENT
  Sex: Female
  Weight: 95.71 kg

DRUGS (7)
  1. ORTHO EVRA [Suspect]
     Indication: CONTRACEPTION
     Route: 062
     Dates: start: 20020701
  2. METFORMIN HCL [Concomitant]
     Indication: POLYCYSTIC OVARIES
     Route: 065
     Dates: start: 20020801
  3. BENTYL [Concomitant]
     Indication: IRRITABLE BOWEL SYNDROME
  4. EFFEXOR [Concomitant]
     Indication: DEPRESSION
  5. LOMOTIL [Concomitant]
     Indication: DRUG USE FOR UNKNOWN INDICATION
  6. NEXIUM [Concomitant]
     Indication: PEPTIC ULCER
  7. PLAVIX [Concomitant]
     Indication: DRUG USE FOR UNKNOWN INDICATION

REACTIONS (3)
  - CEREBRAL HAEMORRHAGE [None]
  - GRAND MAL CONVULSION [None]
  - SUPERIOR SAGITTAL SINUS THROMBOSIS [None]
